FAERS Safety Report 16138696 (Version 1)
Quarter: 2019Q2

REPORT INFORMATION
  Report Type: Report from Study
  Country: PL (occurrence: PL)
  Receive Date: 20190401
  Receipt Date: 20190401
  Transmission Date: 20190711
  Serious: Yes (Other)
  Sender: FDA-Public Use
  Company Number: PL-ROCHE-2288843

PATIENT

DRUGS (1)
  1. VEMURAFENIB. [Suspect]
     Active Substance: VEMURAFENIB
     Indication: METASTATIC MALIGNANT MELANOMA
     Route: 065

REACTIONS (10)
  - Alanine aminotransferase increased [Unknown]
  - Blood creatinine increased [Unknown]
  - Anaemia [Unknown]
  - Aspartate aminotransferase increased [Unknown]
  - Thrombocytosis [Unknown]
  - Hyperbilirubinaemia [Unknown]
  - Haemoglobin increased [Unknown]
  - Hypersensitivity [Unknown]
  - Blood creatinine decreased [Unknown]
  - Thrombocytopenia [Unknown]
